FAERS Safety Report 24732558 (Version 2)
Quarter: 2025Q3

REPORT INFORMATION
  Report Type: Spontaneous
  Country: EU (occurrence: EU)
  Receive Date: 20241213
  Receipt Date: 20250803
  Transmission Date: 20251021
  Serious: Yes (Other)
  Sender: ALEXION PHARMACEUTICALS
  Company Number: 2024CP16856

PATIENT
  Sex: Male

DRUGS (1)
  1. QUETIAPINE FUMARATE [Suspect]
     Active Substance: QUETIAPINE FUMARATE
     Indication: Sleep disorder
     Route: 065

REACTIONS (10)
  - Hair growth abnormal [Unknown]
  - Loss of libido [Unknown]
  - Dizziness [Unknown]
  - Visual impairment [Unknown]
  - Asthenia [Unknown]
  - Vasodilatation [Unknown]
  - Contusion [Not Recovered/Not Resolved]
  - Substance-induced psychotic disorder [Unknown]
  - Off label use [Recovered/Resolved]
  - Product dose confusion [Recovered/Resolved]
